FAERS Safety Report 5737587-2 (Version None)
Quarter: 2008Q2

REPORT INFORMATION
  Report Type: 
  Country: None (occurrence: None)
  Receive Date: 20080514
  Receipt Date: 20080506
  Transmission Date: 20081010
  Serious: Yes (Other)
  Sender: FDA-Public Use
  Company Number: PHHY2008IT07451

PATIENT
  Age: 75 Year
  Sex: Female

DRUGS (1)
  1. ZOMETA [Suspect]
     Indication: METASTASES TO BONE
     Dosage: 4MG
     Route: 042
     Dates: start: 20060911, end: 20070507

REACTIONS (5)
  - ABSCESS ORAL [None]
  - BONE PAIN [None]
  - FISTULA [None]
  - OSTEONECROSIS [None]
  - SURGERY [None]
